FAERS Safety Report 10861632 (Version 6)
Quarter: 2017Q4

REPORT INFORMATION
  Report Type: Report from Study
  Country: CA (occurrence: CA)
  Receive Date: 20150224
  Receipt Date: 20171017
  Transmission Date: 20180320
  Serious: Yes (Other)
  Sender: FDA-Public Use
  Company Number: CA-ROCHE-1541002

PATIENT
  Age: 50 Year
  Sex: Female

DRUGS (2)
  1. XOLAIR [Suspect]
     Active Substance: OMALIZUMAB
     Indication: CHRONIC SPONTANEOUS URTICARIA
     Route: 058
     Dates: start: 20150211
  2. XOLAIR [Suspect]
     Active Substance: OMALIZUMAB
     Route: 058
     Dates: start: 20170126

REACTIONS (11)
  - Dry skin [Unknown]
  - Lip swelling [Unknown]
  - Allergy to arthropod sting [Unknown]
  - Hypoaesthesia oral [Unknown]
  - Peripheral swelling [Unknown]
  - Paraesthesia oral [Unknown]
  - Pruritus [Unknown]
  - Blood pressure systolic increased [Recovering/Resolving]
  - Pharyngeal oedema [Unknown]
  - Erythema [Unknown]
  - Drug ineffective [Unknown]

NARRATIVE: CASE EVENT DATE: 20150211
